FAERS Safety Report 6741194-2 (Version None)
Quarter: 2010Q2

REPORT INFORMATION
  Report Type: 
  Country: None (occurrence: None)
  Receive Date: 20100525
  Receipt Date: 20100525
  Transmission Date: 20101027
  Serious: Yes (Other)
  Sender: FDA-Public Use
  Company Number: None

PATIENT
  Age: 67 Year
  Sex: Female
  Weight: 115.2136 kg

DRUGS (2)
  1. CIPROFLOXACIN [Suspect]
     Indication: CYSTITIS
     Dosage: 500MG 2/DAY FOR 7 DAYS
     Dates: start: 20100127
  2. NITROFURANTOIN [Suspect]
     Indication: CYSTITIS
     Dosage: 100 MG 2/DAY FOR 3 DAYS
     Dates: start: 20100511

REACTIONS (7)
  - ABDOMINAL PAIN [None]
  - CHEST DISCOMFORT [None]
  - CONSTIPATION [None]
  - DYSPHAGIA [None]
  - NAUSEA [None]
  - PRURITUS [None]
  - TENDONITIS [None]
